FAERS Safety Report 9561819 (Version 2)
Quarter: 2015Q1

REPORT INFORMATION
  Report Type: Spontaneous
  Country: US (occurrence: US)
  Receive Date: 20130927
  Receipt Date: 20150324
  Transmission Date: 20150721
  Serious: No
  Sender: FDA-Public Use
  Company Number: US-BIOGENIDEC-2013BI063482

PATIENT
  Age: 58 Year
  Sex: Female

DRUGS (4)
  1. OXYCODONE HCL [Concomitant]
     Active Substance: OXYCODONE HYDROCHLORIDE
  2. CYCLOBENZAPRINE HCL [Concomitant]
     Active Substance: CYCLOBENZAPRINE HYDROCHLORIDE
  3. TECFIDERA [Suspect]
     Active Substance: DIMETHYL FUMARATE
     Indication: MULTIPLE SCLEROSIS
     Route: 048
     Dates: start: 20130617
  4. MECLIZINE HCL [Concomitant]
     Active Substance: MECLIZINE HYDROCHLORIDE

REACTIONS (5)
  - Cognitive disorder [Unknown]
  - Fatigue [Unknown]
  - Dizziness [Unknown]
  - Abdominal pain upper [Unknown]
  - Back pain [Unknown]
